FAERS Safety Report 7474950-6 (Version None)
Quarter: 2011Q2

REPORT INFORMATION
  Report Type: 
  Country: None (occurrence: None)
  Receive Date: 20110509
  Receipt Date: 20110509
  Transmission Date: 20111010
  Serious: No
  Sender: FDA-Public Use
  Company Number: None

PATIENT
  Age: 53 Year
  Sex: Male
  Weight: 92.5338 kg

DRUGS (1)
  1. GABAPENTIN [Suspect]
     Dates: start: 20110428, end: 20110430

REACTIONS (2)
  - DEPRESSION [None]
  - AGITATION [None]
